FAERS Safety Report 7913461 (Version 20)
Quarter: 2013Q3

REPORT INFORMATION
  Report Type: Report from Study
  Country: CA (occurrence: CA)
  Receive Date: 20110425
  Receipt Date: 20130813
  Transmission Date: 20140515
  Serious: Yes (Life-Threatening, Hospitalization, Other)
  Sender: FDA-Public Use
  Company Number: PHHY2010CA12982

PATIENT
  Age: 43 Year
  Sex: Male

DRUGS (6)
  1. SANDOSTATIN LAR [Suspect]
     Indication: CARCINOID TUMOUR
     Dosage: 60 MG, VERY 2 WEEKS
     Route: 030
     Dates: start: 20060626
  2. SANDOSTATIN LAR [Suspect]
     Dosage: 30 MG, EVERY 2 WEEKS
     Route: 030
  3. SANDOSTATIN LAR [Suspect]
     Dosage: 60 MG, EVERY 2 WEEKS
     Route: 030
  4. SANDOSTATIN [Suspect]
     Indication: CARCINOID TUMOUR
     Dosage: 500 UG, Q8H
  5. HMS 90 [Concomitant]
     Dosage: UNK UKN, UNK
  6. TYLENOL NO.2 [Concomitant]
     Dosage: UNK UKN, UNK

REACTIONS (22)
  - Terminal state [Unknown]
  - Nerve compression [Unknown]
  - Nerve injury [Unknown]
  - Pigmentation disorder [Unknown]
  - Erythema [Unknown]
  - Palpitations [Unknown]
  - Arthralgia [Unknown]
  - Pain in extremity [Unknown]
  - Fluid intake reduced [Unknown]
  - Flushing [Unknown]
  - Tremor [Unknown]
  - Device related infection [Unknown]
  - Skin discolouration [Unknown]
  - Medical device discomfort [Unknown]
  - Somnolence [Unknown]
  - Diarrhoea [Unknown]
  - Drug effect decreased [Unknown]
  - Fatigue [Unknown]
  - Dizziness [Unknown]
  - Abdominal distension [Unknown]
  - Blood glucose increased [Unknown]
  - Frequent bowel movements [Unknown]
